FAERS Safety Report 8158316-1 (Version None)
Quarter: 2012Q1

REPORT INFORMATION
  Report Type: 
  Country: None (occurrence: None)
  Receive Date: 20120217
  Receipt Date: 20120202
  Transmission Date: 20120608
  Serious: Yes (Death)
  Sender: FDA-Public Use
  Company Number: 2012020056

PATIENT
  Age: 30 Year
  Sex: Female

DRUGS (2)
  1. DIAZEPAM [Suspect]
  2. FENTANYL [Suspect]

REACTIONS (3)
  - RESPIRATORY ARREST [None]
  - CARDIAC ARREST [None]
  - INTENTIONAL DRUG MISUSE [None]
